FAERS Safety Report 5811067-8 (Version None)
Quarter: 2008Q3

REPORT INFORMATION
  Report Type: 
  Country: None (occurrence: None)
  Receive Date: 20080711
  Receipt Date: 20080422
  Transmission Date: 20090109
  Serious: No
  Sender: FDA-Public Use
  Company Number: 2008BM000091

PATIENT
  Age: 18 Month
  Sex: Female
  Weight: 11.87 kg

DRUGS (2)
  1. KUVAN [Suspect]
     Indication: PHENYLKETONURIA
     Dosage: 20 MG/KG;QD;PO
     Route: 048
     Dates: start: 20080314
  2. LOVAZA [Concomitant]

REACTIONS (1)
  - BILATERAL BREAST BUDS [None]
